FAERS Safety Report 14669740 (Version 2)
Quarter: 2018Q1

REPORT INFORMATION
  Report Type: Report from Study
  Country: NZ (occurrence: NZ)
  Receive Date: 20180322
  Receipt Date: 20180327
  Transmission Date: 20180509
  Serious: Yes (Other)
  Sender: FDA-Public Use
  Company Number: NZ-TAKEDA-2018MPI002789

PATIENT
  Age: 65 Year
  Sex: Female
  Weight: 90 kg

DRUGS (4)
  1. LENALIDOMIDE [Suspect]
     Active Substance: LENALIDOMIDE
     Dosage: 15 MG, UNK
     Route: 048
     Dates: start: 20130501
  2. LENALIDOMIDE [Suspect]
     Active Substance: LENALIDOMIDE
     Indication: PLASMA CELL MYELOMA
     Dosage: UNK
     Route: 048
     Dates: start: 20130204, end: 20130424
  3. IXAZOMIB [Suspect]
     Active Substance: IXAZOMIB
     Indication: PLASMA CELL MYELOMA
     Dosage: 4 MG, UNK
     Route: 048
     Dates: start: 20130204, end: 20131016
  4. DEXAMETHASONE. [Concomitant]
     Active Substance: DEXAMETHASONE
     Indication: PLASMA CELL MYELOMA
     Dosage: UNK
     Route: 048
     Dates: start: 20130204

REACTIONS (1)
  - Bowen^s disease [Recovered/Resolved]

NARRATIVE: CASE EVENT DATE: 20180220
